FAERS Safety Report 19488763 (Version 1)
Quarter: 2021Q3

REPORT INFORMATION
  Report Type: Report from Study
  Country: NZ (occurrence: NZ)
  Receive Date: 20210702
  Receipt Date: 20210702
  Transmission Date: 20211014
  Serious: Yes (Death, Other)
  Sender: FDA-Public Use
  Company Number: NZ-PFIZER INC-2021559253

PATIENT
  Age: 65 Year
  Sex: Female

DRUGS (2)
  1. TOFACITINIB CITRATE [Suspect]
     Active Substance: TOFACITINIB CITRATE
     Indication: PYODERMA GANGRENOSUM
     Dosage: 5 MG, 2X/DAY (BD)
  2. TOFACITINIB CITRATE [Suspect]
     Active Substance: TOFACITINIB CITRATE
     Indication: RHEUMATOID ARTHRITIS

REACTIONS (1)
  - Sepsis [Fatal]
